FAERS Safety Report 6280220-4 (Version None)
Quarter: 2009Q3

REPORT INFORMATION
  Report Type: 
  Country: None (occurrence: None)
  Receive Date: 20090723
  Receipt Date: 20090716
  Transmission Date: 20100115
  Serious: Yes (Other)
  Sender: FDA-Public Use
  Company Number: US-MERCK-0907USA02832

PATIENT
  Age: 65 Year
  Sex: Female

DRUGS (7)
  1. DECADRON [Suspect]
     Route: 048
     Dates: end: 20090301
  2. DECADRON [Suspect]
     Route: 048
     Dates: start: 20090301
  3. REVLIMID [Suspect]
     Indication: MULTIPLE MYELOMA
     Route: 048
     Dates: start: 20090303
  4. ASPIRIN [Concomitant]
     Route: 065
  5. NEUPOGEN [Concomitant]
     Route: 065
     Dates: start: 20081204
  6. TOPROL-XL [Concomitant]
     Indication: HYPERTENSION
     Route: 065
     Dates: end: 20090301
  7. TOPROL-XL [Concomitant]
     Route: 065
     Dates: start: 20090301

REACTIONS (8)
  - BLOOD CREATININE INCREASED [None]
  - BLOOD POTASSIUM DECREASED [None]
  - CONSTIPATION [None]
  - HYPOTENSION [None]
  - NAUSEA [None]
  - NEUTROPHIL COUNT DECREASED [None]
  - VISUAL IMPAIRMENT [None]
  - WHITE BLOOD CELL COUNT DECREASED [None]
